FAERS Safety Report 6930113-1 (Version None)
Quarter: 2010Q3

REPORT INFORMATION
  Report Type: 
  Country: None (occurrence: None)
  Receive Date: 20100818
  Receipt Date: 20090701
  Transmission Date: 20110219
  Serious: No
  Sender: FDA-Public Use
  Company Number: US-ASTRAZENECA-2009UW11739

PATIENT
  Age: 70 Year
  Sex: Female
  Weight: 52.2 kg

DRUGS (1)
  1. IRESSA [Suspect]
     Route: 048
     Dates: start: 20010801

REACTIONS (1)
  - ALOPECIA [None]
